FAERS Safety Report 14324420 (Version 2)
Quarter: 2018Q1

REPORT INFORMATION
  Report Type: Spontaneous
  Country: US (occurrence: US)
  Receive Date: 20171226
  Receipt Date: 20180112
  Transmission Date: 20180509
  Serious: Yes (Other)
  Sender: FDA-Public Use
  Company Number: US-JNJFOC-20171229316

PATIENT
  Age: 61 Year
  Sex: Female

DRUGS (1)
  1. STELARA [Suspect]
     Active Substance: USTEKINUMAB
     Indication: PSORIASIS
     Route: 058

REACTIONS (5)
  - Psoriatic arthropathy [Unknown]
  - Dyspnoea [Unknown]
  - Drug ineffective [Unknown]
  - Psoriasis [Unknown]
  - Chest pain [Unknown]

NARRATIVE: CASE EVENT DATE: 201709
